FAERS Safety Report 14267249 (Version 2)
Quarter: 2018Q1

REPORT INFORMATION
  Report Type: Spontaneous
  Country: US (occurrence: US)
  Receive Date: 20171211
  Receipt Date: 20180301
  Transmission Date: 20180508
  Serious: No
  Sender: FDA-Public Use
  Company Number: US-PFIZER INC-2017526629

PATIENT
  Age: 48 Year
  Sex: Male
  Weight: 90 kg

DRUGS (4)
  1. ATROPINE SULFATE/DIPHENOXYLATE HYDROCHLORIDE [Suspect]
     Active Substance: ATROPINE SULFATE\DIPHENOXYLATE HYDROCHLORIDE
     Indication: DIARRHOEA
     Dosage: ONE TABLET [DIPHENOXYLATE HCL 2.5]/[ATROPINE SULFATE 0.025] TABLET 4 TIMES DAILY
     Route: 048
     Dates: start: 201711, end: 201712
  2. PROTONIX [Concomitant]
     Active Substance: PANTOPRAZOLE SODIUM
     Indication: ULCER
     Dosage: ONE PILL DAILY
     Dates: start: 201710
  3. COLESTIPOL [Concomitant]
     Active Substance: COLESTIPOL
     Dosage: TAKES 2 PILLS IN THE MORNING AND 2 IN THE EVENING
     Dates: start: 201708
  4. IBUPROFEN. [Concomitant]
     Active Substance: IBUPROFEN
     Indication: ARTHRITIS
     Dosage: 800MG TABLETS EVERY 6-8 HOURS
     Route: 048
     Dates: start: 201611

REACTIONS (1)
  - Drug ineffective [Not Recovered/Not Resolved]

NARRATIVE: CASE EVENT DATE: 201712
